FAERS Safety Report 5871136-3 (Version None)
Quarter: 2008Q3

REPORT INFORMATION
  Report Type: 
  Country: None (occurrence: None)
  Receive Date: 20080904
  Receipt Date: 20080829
  Transmission Date: 20090109
  Serious: Yes (Congenital Anomaly)
  Sender: FDA-Public Use
  Company Number: US-GILEAD-2008-0017273

PATIENT
  Sex: Female
  Weight: 2.774 kg

DRUGS (4)
  1. TRUVADA [Suspect]
     Indication: HIV INFECTION
     Route: 064
     Dates: start: 20050527, end: 20080615
  2. KALETRA [Concomitant]
     Indication: HIV INFECTION
     Route: 064
     Dates: start: 20071211, end: 20080712
  3. ISONICOTINYL HYDRAZINE [Concomitant]
     Indication: TUBERCULOSIS
     Route: 064
     Dates: end: 20080101
  4. REYATAZ [Concomitant]
     Indication: HIV INFECTION
     Dates: start: 20050527, end: 20071211

REACTIONS (1)
  - UMBILICAL HERNIA [None]
